FAERS Safety Report 6287341-0 (Version None)
Quarter: 2009Q3

REPORT INFORMATION
  Report Type: 
  Country: None (occurrence: None)
  Receive Date: 20090716
  Receipt Date: 20090404
  Transmission Date: 20100115
  Serious: Yes (Hospitalization)
  Sender: FDA-Public Use
  Company Number: 2009BI002944

PATIENT
  Age: 48 Year
  Sex: Male
  Weight: 83.0083 kg

DRUGS (3)
  1. AVONEX [Suspect]
     Indication: MULTIPLE SCLEROSIS
     Dosage: 30 UG;QW;IM
     Route: 030
     Dates: start: 20010112, end: 20070801
  2. CON MEDS [Concomitant]
  3. PREV MEDS [Concomitant]

REACTIONS (9)
  - CARPAL TUNNEL SYNDROME [None]
  - DEPRESSION [None]
  - GAIT DISTURBANCE [None]
  - GASTROENTERITIS [None]
  - LOSS OF CONSCIOUSNESS [None]
  - MUSCULOSKELETAL DISORDER [None]
  - NEUROPSYCHOLOGICAL TEST ABNORMAL [None]
  - TYPE 2 DIABETES MELLITUS [None]
  - VOMITING [None]
